FAERS Safety Report 4590904-1 (Version None)
Quarter: 2005Q1

REPORT INFORMATION
  Report Type: 
  Country: None (occurrence: None)
  Receive Date: 20050225
  Receipt Date: 20050125
  Transmission Date: 20050727
  Serious: Yes (Life-Threatening)
  Sender: FDA-Public Use
  Company Number: US-GLAXOSMITHKLINE-A0542491A

PATIENT
  Sex: Male

DRUGS (3)
  1. EPZICOM [Suspect]
     Indication: HIV INFECTION
     Dosage: 1TAB PER DAY
     Route: 048
  2. ZIAGEN [Concomitant]
  3. EPIVIR [Concomitant]

REACTIONS (4)
  - HYPERSENSITIVITY [None]
  - MALAISE [None]
  - PYREXIA [None]
  - RASH [None]
